FAERS Safety Report 5206977-9 (Version None)
Quarter: 2007Q1

REPORT INFORMATION
  Report Type: 
  Country: None (occurrence: None)
  Receive Date: 20070108
  Receipt Date: 20070108
  Transmission Date: 20070707
  Serious: No
  Sender: FDA-Public Use
  Company Number: None

PATIENT
  Sex: Female

DRUGS (1)
  1. RIBASPHERE [Suspect]
     Dosage: 800 AM + 600PM BID PO
     Route: 048
     Dates: start: 20061226, end: 20070103

REACTIONS (5)
  - ERYTHEMA [None]
  - ORAL MUCOSAL DISORDER [None]
  - PHARMACEUTICAL PRODUCT COMPLAINT [None]
  - STOMATITIS [None]
  - TONGUE DISORDER [None]
